FAERS Safety Report 8217975-5 (Version None)
Quarter: 2012Q1

REPORT INFORMATION
  Report Type: 
  Country: None (occurrence: None)
  Receive Date: 20120319
  Receipt Date: 20120313
  Transmission Date: 20120608
  Serious: Yes (Hospitalization)
  Sender: FDA-Public Use
  Company Number: BE-PFIZER INC-2012065935

PATIENT
  Age: 88 Year
  Sex: Male
  Weight: 74.6 kg

DRUGS (11)
  1. LYRICA [Suspect]
     Indication: POLYNEUROPATHY
     Dosage: 75 MG, 1X/DAY
     Route: 048
     Dates: start: 20120215, end: 20120223
  2. AMLODIPINE BESYLATE [Concomitant]
     Indication: HYPERTENSION
     Dosage: 5 MG, 1X/DAY
     Route: 048
  3. INNOHEP [Concomitant]
     Indication: PULMONARY EMBOLISM
     Dosage: 0.7 ML, 1X/DAY
     Dates: start: 20111201
  4. FERO-GRAD [Concomitant]
     Indication: ANAEMIA
     Dosage: 525 MG, 1X/DAY
     Route: 048
  5. PIPERACILLIN AND TAZOBACTAM [Suspect]
     Indication: PNEUMONIA
     Dosage: 4 G, 3X/DAY
     Route: 042
     Dates: start: 20120210, end: 20120218
  6. OMIC [Concomitant]
     Indication: BENIGN NEOPLASM OF PROSTATE
     Dosage: 4 MG, 1X/DAY
     Route: 048
  7. ESCITALOPRAM [Suspect]
     Indication: DEPRESSION
     Dosage: 10 MG, 1X/DAY
     Route: 048
     Dates: start: 20120215, end: 20120223
  8. LEUPROLIDE ACETATE [Concomitant]
     Indication: PROSTATE CANCER
     Dosage: 1 UNK, CYCLIC
     Route: 030
     Dates: start: 20040101
  9. CASODEX [Concomitant]
     Indication: PROSTATE CANCER
     Dosage: 50 MG, 1X/DAY
     Route: 048
     Dates: start: 20110101
  10. BUMETANIDE [Concomitant]
     Dosage: 1 MG, 1X/DAY
     Route: 048
  11. VITAMIN D [Concomitant]
     Dosage: UNK
     Route: 048

REACTIONS (6)
  - HYPOTONIA [None]
  - FALL [None]
  - MYOCLONUS [None]
  - MUSCULAR WEAKNESS [None]
  - PARAESTHESIA [None]
  - HYPOGLYCAEMIA [None]
